FAERS Safety Report 8156059-1 (Version None)
Quarter: 2012Q1

REPORT INFORMATION
  Report Type: 
  Country: None (occurrence: None)
  Receive Date: 20120103
  Receipt Date: 20110927
  Transmission Date: 20120608
  Serious: No
  Sender: FDA-Public Use
  Company Number: AE-2011-000806

PATIENT
  Age: 55 Year
  Sex: Male
  Weight: 99.3377 kg

DRUGS (6)
  1. PRILOSEC [Concomitant]
  2. PEGASYS [Concomitant]
  3. RIBAVIRIN [Concomitant]
  4. INCIVEK [Suspect]
     Dosage: 2250 MG (750 MG, 1 IN 8 HR), ORAL
     Route: 048
     Dates: start: 20110801
  5. ATENOLOL [Concomitant]
  6. BENADRYL [Concomitant]

REACTIONS (4)
  - BLOOD BILIRUBIN INCREASED [None]
  - HAEMOLYTIC ANAEMIA [None]
  - DIARRHOEA [None]
  - RECTAL HAEMORRHAGE [None]
